FAERS Safety Report 10270954 (Version 1)
Quarter: 2014Q2

REPORT INFORMATION
  Report Type: Spontaneous
  Country: US (occurrence: None)
  Receive Date: 20140626
  Receipt Date: 20140626
  Transmission Date: 20141212
  Serious: Yes (Other)
  Sender: FDA-Public Use
  Company Number: None

PATIENT
  Age: 71 Year
  Sex: Female
  Weight: 69.4 kg

DRUGS (3)
  1. AMLODIPINE [Suspect]
     Indication: HYPERTENSION
     Route: 048
     Dates: start: 20140325, end: 20140603
  2. NEBIVOLOL 20 MG [Concomitant]
  3. ALPRAZOLAM 0.5 MG [Concomitant]

REACTIONS (1)
  - Deep vein thrombosis [None]
